FAERS Safety Report 5452922-0 (Version None)
Quarter: 2007Q3

REPORT INFORMATION
  Report Type: 
  Country: None (occurrence: None)
  Receive Date: 20070914
  Receipt Date: 20070910
  Transmission Date: 20080115
  Serious: Yes (Hospitalization)
  Sender: FDA-Public Use
  Company Number: B0487109A

PATIENT
  Age: 87 Year
  Sex: Female

DRUGS (6)
  1. CARVEDILOL [Suspect]
     Dosage: 25MG PER DAY
     Route: 048
  2. NIFEDIPINE [Suspect]
     Dosage: 20MG TWICE PER DAY
     Route: 048
  3. ENALAPRIL MALEATE [Suspect]
     Dosage: 10MG PER DAY
     Route: 048
  4. FRUSEMIDE [Suspect]
     Dosage: 40MG PER DAY
     Route: 065
  5. ATORVASTATIN CALCIUM [Suspect]
     Dosage: 10MG PER DAY
     Route: 065
  6. GLYCERYL TRINITRATE [Suspect]
     Indication: ESSENTIAL HYPERTENSION
     Route: 062
     Dates: start: 20070727

REACTIONS (7)
  - ANAPHYLACTIC REACTION [None]
  - BRONCHOSPASM [None]
  - HYPOTENSION [None]
  - RESPIRATORY FAILURE [None]
  - RESPIRATORY RATE INCREASED [None]
  - STRIDOR [None]
  - URTICARIA [None]
